FAERS Safety Report 15155823 (Version 1)
Quarter: 2018Q3

REPORT INFORMATION
  Report Type: Spontaneous
  Country: GB (occurrence: GB)
  Receive Date: 20180717
  Receipt Date: 20180717
  Transmission Date: 20181010
  Serious: Yes (Hospitalization)
  Sender: FDA-Public Use
  Company Number: GB-US WORLDMEDS, LLC-STA_00018120

PATIENT
  Age: 75 Year
  Sex: Male

DRUGS (2)
  1. ROTIGOTINE [Concomitant]
     Active Substance: ROTIGOTINE
  2. APOMORPHINE HYDROCHLORIDE [Suspect]
     Active Substance: APOMORPHINE HYDROCHLORIDE
     Indication: PARKINSON^S DISEASE
     Route: 058
     Dates: end: 20160729

REACTIONS (1)
  - Infusion site necrosis [Not Recovered/Not Resolved]
